FAERS Safety Report 16411617 (Version 3)
Quarter: 2019Q3

REPORT INFORMATION
  Report Type: Spontaneous
  Country: NZ (occurrence: NZ)
  Receive Date: 20190610
  Receipt Date: 20190716
  Transmission Date: 20191004
  Serious: Yes (Hospitalization)
  Sender: FDA-Public Use
  Company Number: NZ-JNJFOC-20190611648

PATIENT
  Age: 41 Year
  Sex: Male

DRUGS (7)
  1. INVEGA TRINZA [Suspect]
     Active Substance: PALIPERIDONE PALMITATE
     Indication: PRODUCT USED FOR UNKNOWN INDICATION
     Route: 030
  2. RISPERIDONE. [Suspect]
     Active Substance: RISPERIDONE
     Route: 048
  3. RISPERIDONE. [Suspect]
     Active Substance: RISPERIDONE
     Route: 048
  4. BUPROPION. [Concomitant]
     Active Substance: BUPROPION
     Route: 048
  5. THIAMINE. [Concomitant]
     Active Substance: THIAMINE
     Route: 048
     Dates: start: 20190601
  6. RISPERIDONE. [Suspect]
     Active Substance: RISPERIDONE
     Indication: PRODUCT USED FOR UNKNOWN INDICATION
     Route: 048
  7. NALTREXONE [Concomitant]
     Active Substance: NALTREXONE
     Route: 048

REACTIONS (4)
  - Product dose omission [Unknown]
  - Delusion [Unknown]
  - Anxiety [Unknown]
  - Hallucination, auditory [Unknown]

NARRATIVE: CASE EVENT DATE: 20190420
